FAERS Safety Report 14391641 (Version 1)
Quarter: 2018Q1

REPORT INFORMATION
  Report Type: Spontaneous
  Country: US (occurrence: US)
  Receive Date: 20180116
  Receipt Date: 20180116
  Transmission Date: 20180509
  Serious: No
  Sender: FDA-Public Use
  Company Number: US-PFIZER INC-2018015280

PATIENT

DRUGS (1)
  1. LYRICA [Suspect]
     Active Substance: PREGABALIN
     Dosage: 75 MG, 2X/DAY

REACTIONS (7)
  - Dry mouth [Unknown]
  - Muscle disorder [Unknown]
  - Weight increased [Unknown]
  - Heart rate increased [Unknown]
  - Anxiety [Unknown]
  - Agitation [Unknown]
  - Throat tightness [Unknown]
